FAERS Safety Report 24620153 (Version 2)
Quarter: 2025Q4

REPORT INFORMATION
  Report Type: Spontaneous
  Country: JP (occurrence: JP)
  Receive Date: 20241114
  Receipt Date: 20251006
  Transmission Date: 20260119
  Serious: Yes (Other)
  Sender: ROCHE
  Company Number: JP-CHUGAI-2024038944

PATIENT
  Age: 80 Year
  Sex: Male

DRUGS (30)
  1. POLIVY [Suspect]
     Active Substance: POLATUZUMAB VEDOTIN-PIIQ
     Indication: Diffuse large B-cell lymphoma
     Dosage: UNK
     Route: 042
  2. RITUXIMAB [Suspect]
     Active Substance: RITUXIMAB
     Indication: Diffuse large B-cell lymphoma
     Dosage: UNK
     Route: 042
  3. BENDAMUSTINE HYDROCHLORIDE [Suspect]
     Active Substance: BENDAMUSTINE HYDROCHLORIDE
     Indication: Diffuse large B-cell lymphoma
     Dosage: UNK
     Route: 042
  4. ETOPOSIDE [Suspect]
     Active Substance: ETOPOSIDE
     Indication: Diffuse large B-cell lymphoma
     Route: 065
  5. CISPLATIN [Suspect]
     Active Substance: CISPLATIN
     Indication: Diffuse large B-cell lymphoma
     Route: 065
  6. CYTARABINE [Suspect]
     Active Substance: CYTARABINE
     Indication: Diffuse large B-cell lymphoma
     Route: 065
  7. METHYLPREDNISOLONE [Suspect]
     Active Substance: METHYLPREDNISOLONE
     Indication: Diffuse large B-cell lymphoma
     Route: 065
  8. POLARAMINE [Concomitant]
     Active Substance: DEXCHLORPHENIRAMINE MALEATE
  9. CALCIUM CHLORIDE ANHYDROUS\POTASSIUM CHLORIDE\SODIUM CHLORIDE\SODIUM L [Concomitant]
     Active Substance: CALCIUM CHLORIDE ANHYDROUS\POTASSIUM CHLORIDE\SODIUM CHLORIDE\SODIUM LACTATE
  10. CEFEPIME HYDROCHLORIDE [Concomitant]
     Active Substance: CEFEPIME HYDROCHLORIDE
  11. BILASTINE [Concomitant]
     Active Substance: BILASTINE
  12. LANSOPRAZOLE [Concomitant]
     Active Substance: LANSOPRAZOLE
  13. FLUCONAZOLE [Concomitant]
     Active Substance: FLUCONAZOLE
  14. ACYCLOVIR [Concomitant]
     Active Substance: ACYCLOVIR
  15. MIRABEGRON [Concomitant]
     Active Substance: MIRABEGRON
  16. EDOXABAN TOSYLATE [Concomitant]
     Active Substance: EDOXABAN TOSYLATE
  17. ROSUVASTATIN FELDSENF [Concomitant]
  18. EZETIMIBE [Concomitant]
     Active Substance: EZETIMIBE
  19. CALONAL [Concomitant]
     Active Substance: ACETAMINOPHEN
  20. LEVETIRACETAM [Concomitant]
     Active Substance: LEVETIRACETAM
  21. AMITIZA [Concomitant]
     Active Substance: LUBIPROSTONE
  22. CLENBUTEROL HYDROCHLORIDE [Concomitant]
     Active Substance: CLENBUTEROL HYDROCHLORIDE
  23. MAGNESIUM OXIDE [Concomitant]
     Active Substance: MAGNESIUM OXIDE
  24. URSODIOL [Concomitant]
     Active Substance: URSODIOL
  25. LUMIGAN [Concomitant]
     Active Substance: BIMATOPROST
  26. COSOPT [Concomitant]
     Active Substance: DORZOLAMIDE HYDROCHLORIDE\TIMOLOL MALEATE
  27. ALPHAGAN P [Concomitant]
     Active Substance: BRIMONIDINE TARTRATE
  28. RIPASUDIL HYDROCHLORIDE [Concomitant]
     Active Substance: RIPASUDIL HYDROCHLORIDE
  29. GUAIAZULENE [Concomitant]
     Active Substance: GUAIAZULENE
  30. HEPARINOID [Concomitant]

REACTIONS (3)
  - Device related infection [Unknown]
  - Staphylococcal infection [Unknown]
  - Disease progression [Unknown]
